FAERS Safety Report 5199599-X (Version None)
Quarter: 2007Q1

REPORT INFORMATION
  Report Type: 
  Country: None (occurrence: None)
  Receive Date: 20070103
  Receipt Date: 20070103
  Transmission Date: 20070707
  Serious: Yes (Other)
  Sender: FDA-Public Use
  Company Number: None

PATIENT
  Age: 63 Year
  Sex: Male
  Weight: 90.7194 kg

DRUGS (3)
  1. CIALIS [Suspect]
     Indication: ERECTILE DYSFUNCTION
     Dosage: 10MG  OCCASIONALLY  PO
     Route: 048
     Dates: start: 20061001, end: 20061230
  2. PREVACID [Concomitant]
  3. SANDOSTATIN [Concomitant]

REACTIONS (2)
  - BLINDNESS TRANSIENT [None]
  - DRUG INEFFECTIVE [None]
